FAERS Safety Report 9965430 (Version 1)
Quarter: 2014Q1

REPORT INFORMATION
  Report Type: Report from Study
  Country: US (occurrence: US)
  Receive Date: 20140305
  Receipt Date: 20140305
  Transmission Date: 20141002
  Serious: No
  Sender: FDA-Public Use
  Company Number: US-ABBVIE-13P-163-1126511-00

PATIENT
  Age: 39 Year
  Sex: Female

DRUGS (11)
  1. HUMIRA [Suspect]
     Indication: CROHN^S DISEASE
     Dates: start: 20130726, end: 20130726
  2. HUMIRA [Suspect]
  3. PREDNISONE [Concomitant]
     Indication: CROHN^S DISEASE
     Dosage: WOULD BE TAPERED
  4. LASIX [Concomitant]
     Indication: FLUID RETENTION
  5. LISINOPRIL [Concomitant]
     Indication: HYPERTENSION
  6. PROAIR [Concomitant]
     Indication: ASTHMA
     Dosage: INHALER, 2 PUFFS AT BEDTIME
  7. SINGULAIR [Concomitant]
     Indication: ASTHMA
     Dosage: AT BEDTIME
  8. XANAX [Concomitant]
     Indication: ANXIETY
     Dosage: AS NEEDED
  9. CLOBETASOL PROPIONATE [Concomitant]
     Indication: PSORIASIS
     Dosage: AS NEEDED
  10. TRIAMCINOLONE ACETONIDE [Concomitant]
     Indication: PSORIASIS
     Dosage: AS NEEDED
  11. FLONASE [Concomitant]
     Indication: HYPERSENSITIVITY
     Dosage: 2 SPRAYS, EACH NOSTRIL, DAILY

REACTIONS (5)
  - Feeling of body temperature change [Not Recovered/Not Resolved]
  - Nausea [Not Recovered/Not Resolved]
  - Vomiting [Not Recovered/Not Resolved]
  - Chills [Not Recovered/Not Resolved]
  - Hyperhidrosis [Not Recovered/Not Resolved]
